FAERS Safety Report 12927981 (Version 1)
Quarter: 2016Q4

REPORT INFORMATION
  Report Type: Spontaneous
  Country: BR (occurrence: BR)
  Receive Date: 20161110
  Receipt Date: 20161110
  Transmission Date: 20170207
  Serious: Yes (Other)
  Sender: FDA-Public Use
  Company Number: BR-CIPLA LTD.-2016BR20859

PATIENT

DRUGS (2)
  1. CARBOPLATIN. [Suspect]
     Active Substance: CARBOPLATIN
     Indication: SMALL CELL LUNG CANCER
     Dosage: AUC 5, ON DAY 1
     Route: 065
  2. ETOPOSIDE. [Suspect]
     Active Substance: ETOPOSIDE
     Indication: SMALL CELL LUNG CANCER
     Dosage: 100 MG/M2, ON DAY 1 TO 3, EVERY 21 DAYS
     Route: 065

REACTIONS (3)
  - Pneumatosis intestinalis [Recovered/Resolved]
  - Haematoma [Unknown]
  - Febrile neutropenia [Unknown]
